FAERS Safety Report 15740074 (Version 1)
Quarter: 2018Q4

REPORT INFORMATION
  Report Type: Spontaneous
  Country: HU (occurrence: HU)
  Receive Date: 20181219
  Receipt Date: 20181219
  Transmission Date: 20190205
  Serious: Yes (Other)
  Sender: FDA-Public Use
  Company Number: HU-EMD SERONO-E2B_90065125

PATIENT
  Age: 23 Year
  Sex: Female

DRUGS (2)
  1. REBIF [Suspect]
     Active Substance: INTERFERON BETA-1A
     Indication: RELAPSING-REMITTING MULTIPLE SCLEROSIS
     Dosage: UNKNOWN
     Route: 065
  2. AVONEX [Suspect]
     Active Substance: INTERFERON BETA-1A
     Indication: RELAPSING-REMITTING MULTIPLE SCLEROSIS
     Dosage: THERAPY START DATE 2006
     Route: 065
     Dates: end: 200708

REACTIONS (10)
  - Inflammation [Unknown]
  - Optic neuritis [Unknown]
  - Drug ineffective [Unknown]
  - Spinal disorder [Unknown]
  - Quadriparesis [Unknown]
  - Neuromyelitis optica spectrum disorder [Unknown]
  - Paresis [Unknown]
  - Incontinence [Unknown]
  - Benign neoplasm of spinal cord [Unknown]
  - Spinal cord neoplasm [Unknown]

NARRATIVE: CASE EVENT DATE: 2003
